FAERS Safety Report 8251476-3 (Version None)
Quarter: 2012Q2

REPORT INFORMATION
  Report Type: 
  Country: None (occurrence: None)
  Receive Date: 20120402
  Receipt Date: 20120328
  Transmission Date: 20120825
  Serious: Yes (Hospitalization, Other)
  Sender: FDA-Public Use
  Company Number: US-BAYER-2012-031185

PATIENT
  Age: 65 Year
  Sex: Female

DRUGS (1)
  1. ASPIRIN [Suspect]
     Indication: THROMBOSIS PROPHYLAXIS
     Dosage: 325 MG, QD
     Route: 048

REACTIONS (1)
  - GASTRIC ULCER [None]
